FAERS Safety Report 12527688 (Version 2)
Quarter: 2016Q3

REPORT INFORMATION
  Report Type: Spontaneous
  Country: US (occurrence: US)
  Receive Date: 20160705
  Receipt Date: 20160725
  Transmission Date: 20161109
  Serious: Yes (Hospitalization, Other)
  Sender: FDA-Public Use
  Company Number: US-SMITH AND NEPHEW, INC-2016SMT00547

PATIENT
  Sex: Male
  Weight: 65.77 kg

DRUGS (2)
  1. UNSPECIFIED SLEEPING PILL [Concomitant]
     Dosage: 1 TABLETS, AS NEEDED
  2. REGRANEX [Suspect]
     Active Substance: BECAPLERMIN
     Indication: WOUND INFECTION
     Dosage: UNK
     Dates: start: 201606, end: 201606

REACTIONS (9)
  - Osteomyelitis [Recovering/Resolving]
  - Wound drainage [Recovering/Resolving]
  - Arthritis bacterial [Recovering/Resolving]
  - Off label use [Recovered/Resolved]
  - Microcytic anaemia [Unknown]
  - Aortic stenosis [Unknown]
  - Skin ulcer [Recovered/Resolved]
  - Toe amputation [None]
  - Cellulitis [Recovered/Resolved]

NARRATIVE: CASE EVENT DATE: 2016
